FAERS Safety Report 18328933 (Version 2)
Quarter: 2020Q4

REPORT INFORMATION
  Report Type: Report from Study
  Country: US (occurrence: US)
  Receive Date: 20200930
  Receipt Date: 20201015
  Transmission Date: 20210113
  Serious: No
  Sender: FDA-Public Use
  Company Number: NVSC2020US265395

PATIENT
  Sex: Female

DRUGS (1)
  1. ENTRESTO [Suspect]
     Active Substance: SACUBITRIL\VALSARTAN
     Indication: CARDIAC FAILURE
     Dosage: 50 MG, BID (24/26MG)
     Route: 048
     Dates: start: 2017

REACTIONS (4)
  - Illness [Not Recovered/Not Resolved]
  - Memory impairment [Unknown]
  - Cough [Not Recovered/Not Resolved]
  - Speech disorder [Unknown]
